FAERS Safety Report 17958554 (Version 1)
Quarter: 2020Q2

REPORT INFORMATION
  Report Type: Report from Study
  Country: None (occurrence: BE)
  Receive Date: 20200630
  Receipt Date: 20200630
  Transmission Date: 20200714
  Serious: No
  Sender: FDA-Public Use
  Company Number: BE-ABBVIE-17K-013-3086942-00

PATIENT
  Age: 63 Year
  Sex: Female

DRUGS (1)
  1. IMBRUVICA [Suspect]
     Active Substance: IBRUTINIB
     Indication: CHRONIC LYMPHOCYTIC LEUKAEMIA
     Route: 048
     Dates: start: 20170728

REACTIONS (8)
  - Squamous cell carcinoma of skin [Recovered/Resolved with Sequelae]
  - Nasopharyngitis [Recovered/Resolved]
  - Nail disorder [Recovered/Resolved]
  - Pseudohyperkalaemia [Not Recovered/Not Resolved]
  - Haematoma [Recovered/Resolved]
  - Localised infection [Recovered/Resolved]
  - Pain in extremity [Recovered/Resolved]
  - Muscle spasms [Not Recovered/Not Resolved]

NARRATIVE: CASE EVENT DATE: 20170907
